FAERS Safety Report 25689697 (Version 3)
Quarter: 2025Q4

REPORT INFORMATION
  Report Type: Report from Study
  Country: CA (occurrence: None)
  Receive Date: 20250818
  Receipt Date: 20251212
  Transmission Date: 20260117
  Serious: Yes (Other)
  Sender: UCB
  Company Number: CA-UCBSA-2025010976

PATIENT
  Age: 48 Year

DRUGS (5)
  1. BIMEKIZUMAB [Suspect]
     Active Substance: BIMEKIZUMAB
     Indication: Ankylosing spondylitis
     Dosage: 160 MILLIGRAM, EV 4 WEEKS
  2. BIMEKIZUMAB [Suspect]
     Active Substance: BIMEKIZUMAB
     Dosage: 160 MILLIGRAM, EV 4 WEEKS
  3. CYCLOBENZAPRINE [Concomitant]
     Active Substance: CYCLOBENZAPRINE
     Indication: Product used for unknown indication
  4. DIFLUCAN [Concomitant]
     Active Substance: FLUCONAZOLE
     Indication: Product used for unknown indication
     Dosage: EVERY 4 DAYS
  5. CELEBREX [Concomitant]
     Active Substance: CELECOXIB
     Indication: Product used for unknown indication
     Dosage: AS NEEDED

REACTIONS (11)
  - Pneumonia [Recovered/Resolved]
  - Renal failure [Recovered/Resolved]
  - Ankylosing spondylitis [Not Recovered/Not Resolved]
  - Psoriatic arthropathy [Not Recovered/Not Resolved]
  - Illness [Recovering/Resolving]
  - Pyrexia [Recovering/Resolving]
  - Chronic sinusitis [Unknown]
  - Influenza [Recovered/Resolved]
  - Bronchitis [Recovered/Resolved]
  - Ear infection [Not Recovered/Not Resolved]
  - Therapeutic product effect incomplete [Unknown]
